FAERS Safety Report 22366476 (Version 9)
Quarter: 2024Q1

REPORT INFORMATION
  Report Type: Spontaneous
  Country: US (occurrence: US)
  Receive Date: 20230525
  Receipt Date: 20240319
  Transmission Date: 20240409
  Serious: Yes (Other)
  Sender: FDA-Public Use
  Company Number: US-PFIZER INC-PV202300075354

PATIENT
  Age: 61 Year
  Sex: Female

DRUGS (2)
  1. PREMARIN [Suspect]
     Active Substance: ESTROGENS, CONJUGATED
     Indication: Hormone replacement therapy
     Dosage: UNK, ALTERNATE DAY (3 TIMES A DAY)
     Route: 067
  2. PREMARIN [Suspect]
     Active Substance: ESTROGENS, CONJUGATED
     Indication: Pulmonary thrombosis

REACTIONS (7)
  - Joint injury [Not Recovered/Not Resolved]
  - Thyroidectomy [Unknown]
  - Dysphonia [Unknown]
  - Weight decreased [Unknown]
  - Off label use [Unknown]
  - Contraindicated product administered [Unknown]
  - Circumstance or information capable of leading to medication error [Unknown]
